FAERS Safety Report 15489060 (Version 2)
Quarter: 2019Q1

REPORT INFORMATION
  Report Type: Spontaneous
  Country: NL (occurrence: NL)
  Receive Date: 20181011
  Receipt Date: 20190208
  Transmission Date: 20190417
  Serious: Yes (Death, Hospitalization, Other)
  Sender: FDA-Public Use
  Company Number: NL-PFIZER INC-2018407058

PATIENT
  Age: 75 Year
  Sex: Female

DRUGS (8)
  1. CARBASALATE CALCIUM [Concomitant]
     Active Substance: CARBASPIRIN
     Dosage: 100 MG, 1X/DAY
     Route: 048
     Dates: end: 20180821
  2. SOMAVERT [Suspect]
     Active Substance: PEGVISOMANT
     Dosage: 40 MG, 1X/DAY
     Route: 058
     Dates: start: 20080312, end: 20081002
  3. SOMAVERT [Suspect]
     Active Substance: PEGVISOMANT
     Dosage: 120 MG, WEEKLY
     Route: 058
     Dates: start: 20130429, end: 20180821
  4. ENALAPRIL [Concomitant]
     Active Substance: ENALAPRIL
     Dosage: 20 MG, 2X/DAY
     Route: 048
     Dates: end: 20180821
  5. SOMAVERT [Suspect]
     Active Substance: PEGVISOMANT
     Dosage: 80 MG, 1X/DAY
     Route: 058
     Dates: start: 20081003, end: 20120618
  6. HYDROCHLOROTHIAZIDE. [Concomitant]
     Active Substance: HYDROCHLOROTHIAZIDE
     Dosage: 12.5 MG, 1X/DAY
     Route: 048
     Dates: end: 20180821
  7. SOMAVERT [Suspect]
     Active Substance: PEGVISOMANT
     Indication: ACROMEGALY
     Dosage: 10 MG, 1X/DAY
     Route: 058
     Dates: start: 20060125, end: 20080311
  8. SOMAVERT [Suspect]
     Active Substance: PEGVISOMANT
     Dosage: 100 MG, WEEKLY
     Route: 058
     Dates: start: 20120619, end: 20130428

REACTIONS (2)
  - Cholecystitis [Fatal]
  - Product use issue [Unknown]

NARRATIVE: CASE EVENT DATE: 20080312
